FAERS Safety Report 18826393 (Version 3)
Quarter: 2021Q1

REPORT INFORMATION
  Report Type: Report from Study
  Country: US (occurrence: US)
  Receive Date: 20210202
  Receipt Date: 20210327
  Transmission Date: 20210419
  Serious: No
  Sender: FDA-Public Use
  Company Number: NVSC2021US024631

PATIENT
  Age: 49 Year
  Sex: Female

DRUGS (1)
  1. COSENTYX [Suspect]
     Active Substance: SECUKINUMAB
     Indication: PSORIATIC ARTHROPATHY
     Dosage: 300 MG, QW (300 MG Q WEEK FOR FIVE WEEKS AND THEN Q4 WEEKS)
     Route: 058
     Dates: start: 20210127

REACTIONS (5)
  - Fatigue [Unknown]
  - Swelling [Unknown]
  - Peripheral swelling [Unknown]
  - Arthralgia [Not Recovered/Not Resolved]
  - Anxiety [Unknown]

NARRATIVE: CASE EVENT DATE: 20210129
